FAERS Safety Report 4551483-8 (Version None)
Quarter: 2005Q1

REPORT INFORMATION
  Report Type: 
  Country: None (occurrence: None)
  Receive Date: 20050111
  Receipt Date: 20041229
  Transmission Date: 20050727
  Serious: Yes (Hospitalization, Other)
  Sender: FDA-Public Use
  Company Number: 2004121586

PATIENT
  Age: 77 Year
  Sex: Male

DRUGS (1)
  1. CELEBRA (CELECOXIB) [Suspect]
     Indication: OSTEOARTHRITIS
     Dosage: ORAL
     Route: 048

REACTIONS (2)
  - HUMERUS FRACTURE [None]
  - TRANSIENT ISCHAEMIC ATTACK [None]
